FAERS Safety Report 21237447 (Version 1)
Quarter: 2022Q3

REPORT INFORMATION
  Report Type: Spontaneous
  Country: US (occurrence: US)
  Receive Date: 20220822
  Receipt Date: 20220822
  Transmission Date: 20221027
  Serious: No
  Sender: FDA-Public Use
  Company Number: US-SA-SAC20220817000505

PATIENT
  Age: 39 Year
  Sex: Female
  Weight: 149 kg

DRUGS (1)
  1. DUPIXENT [Suspect]
     Active Substance: DUPILUMAB
     Indication: Asthma
     Dosage: 300 MG, QOW
     Route: 058

REACTIONS (5)
  - Asthma [Unknown]
  - Wheezing [Unknown]
  - Cough [Unknown]
  - COVID-19 [Unknown]
  - Intentional dose omission [Unknown]
